FAERS Safety Report 8477868 (Version 7)
Quarter: 2012Q4

REPORT INFORMATION
  Report Type: 
  Country: US (occurrence: US)
  Receive Date: 20120327
  Receipt Date: 20121016
  Transmission Date: 20130627
  Serious: Yes (Life-Threatening, Hospitalization, Other)
  Sender: FDA-Public Use
  Company Number: US-PFIZER INC-2012076177

PATIENT
  Age: 53 Year
  Sex: Male
  Weight: 92.97 kg

DRUGS (4)
  1. XANAX XR [Suspect]
     Indication: ANXIETY
     Dosage: 0.5 mg, 3x/day as needed
     Route: 048
     Dates: start: 2000
  2. XANAX XR [Suspect]
     Indication: HYPERTENSION
     Dosage: 0.5 mg, 1x/day
     Route: 048
     Dates: start: 2004
  3. XANAX XR [Suspect]
     Dosage: 0.5 mg, unk
     Route: 048
  4. ALPRAZOLAM [Suspect]
     Indication: ANXIETY
     Dosage: 0.5 mg, UNK

REACTIONS (14)
  - Gastric disorder [Unknown]
  - Pain [Not Recovered/Not Resolved]
  - Back pain [Not Recovered/Not Resolved]
  - Renal impairment [Unknown]
  - Abdominal distension [Unknown]
  - Blood potassium decreased [Unknown]
  - Malaise [Unknown]
  - Drug intolerance [Unknown]
  - Dyspepsia [Unknown]
  - Off label use [Unknown]
  - Drug ineffective [Unknown]
  - Product taste abnormal [Unknown]
  - Nausea [Not Recovered/Not Resolved]
  - Headache [Not Recovered/Not Resolved]
